FAERS Safety Report 25432414 (Version 1)
Quarter: 2025Q2

REPORT INFORMATION
  Report Type: Spontaneous
  Country: US (occurrence: US)
  Receive Date: 20250613
  Receipt Date: 20250613
  Transmission Date: 20250716
  Serious: Yes (Other)
  Sender: NOVO NORDISK
  Company Number: US-NOVOPROD-1453069

PATIENT
  Sex: Male

DRUGS (1)
  1. OZEMPIC [Suspect]
     Active Substance: SEMAGLUTIDE
     Indication: Glucose tolerance impaired
     Route: 058
     Dates: start: 202412, end: 202504

REACTIONS (7)
  - Craniocerebral injury [Unknown]
  - Concussion [Unknown]
  - Road traffic accident [Unknown]
  - Memory impairment [Unknown]
  - Vertigo [Unknown]
  - Fall [Unknown]
  - Product use in unapproved indication [Unknown]
